FAERS Safety Report 7894264-X (Version None)
Quarter: 2011Q4

REPORT INFORMATION
  Report Type: 
  Country: None (occurrence: None)
  Receive Date: 20111104
  Receipt Date: 20111021
  Transmission Date: 20120403
  Serious: Yes (Hospitalization)
  Sender: FDA-Public Use
  Company Number: CA-ROCHE-1007610

PATIENT
  Sex: Female
  Weight: 74 kg

DRUGS (4)
  1. XOLAIR [Suspect]
     Indication: ASTHMA
     Route: 058
     Dates: start: 20090826
  2. DEXTROAMPHETAMINE [Concomitant]
  3. QVAR 40 [Concomitant]
  4. PREDNISONE [Concomitant]
     Dates: start: 20110906

REACTIONS (11)
  - ASTHMA [None]
  - CHEST DISCOMFORT [None]
  - LUNG DISORDER [None]
  - DYSPNOEA EXERTIONAL [None]
  - WHEEZING [None]
  - DYSPNOEA [None]
  - CONTUSION [None]
  - PULMONARY CONGESTION [None]
  - SKIN ATROPHY [None]
  - MALAISE [None]
  - PRODUCTIVE COUGH [None]
